FAERS Safety Report 11163831 (Version 1)
Quarter: 2015Q2

REPORT INFORMATION
  Report Type: Report from Study
  Country: US (occurrence: US)
  Receive Date: 20150604
  Receipt Date: 20150604
  Transmission Date: 20150821
  Serious: Yes (Other)
  Sender: FDA-Public Use
  Company Number: US-ASTRAZENECA-2015SE24332

PATIENT
  Sex: Female

DRUGS (1)
  1. LYNPARZA [Suspect]
     Active Substance: OLAPARIB
     Indication: OVARIAN CANCER
     Route: 048

REACTIONS (6)
  - Musculoskeletal chest pain [Recovered/Resolved]
  - Infection [Unknown]
  - Disease progression [Unknown]
  - Nausea [Unknown]
  - Ageusia [Unknown]
  - Decreased appetite [Unknown]
